FAERS Safety Report 7864145-6 (Version None)
Quarter: 2011Q4

REPORT INFORMATION
  Report Type: 
  Country: None (occurrence: None)
  Receive Date: 20111028
  Receipt Date: 20111019
  Transmission Date: 20120403
  Serious: Yes (Hospitalization)
  Sender: FDA-Public Use
  Company Number: BR-US-EMD SERONO, INC.-7075001

PATIENT
  Sex: Female

DRUGS (5)
  1. REBIF [Suspect]
     Indication: RELAPSING-REMITTING MULTIPLE SCLEROSIS
     Dates: start: 20030826, end: 20110803
  2. REBIF [Suspect]
     Dates: start: 20110803
  3. MANTIDAN [Concomitant]
  4. VENLAFAXINE [Concomitant]
  5. IBUPROFEN (ADVIL) [Concomitant]

REACTIONS (3)
  - GAIT DISTURBANCE [None]
  - FATIGUE [None]
  - CENTRAL NERVOUS SYSTEM LESION [None]
